FAERS Safety Report 8877141 (Version 1)
Quarter: 2012Q4

REPORT INFORMATION
  Report Type: 
  Country: US (occurrence: US)
  Receive Date: 20121023
  Receipt Date: 20121023
  Transmission Date: 20130627
  Serious: No
  Sender: FDA-Public Use
  Company Number: US-AMGEN-USASP2012057225

PATIENT
  Age: 58 Year
  Sex: Male

DRUGS (6)
  1. ENBREL [Suspect]
     Indication: PRODUCT USED FOR UNKNOWN INDICATION
     Dosage: 50 mg, qwk
     Route: 058
  2. PREDNISONE [Concomitant]
     Dosage: 1 mg, UNK
  3. LEFLUNOMIDE [Concomitant]
     Dosage: 10 mg, UNK
  4. BENICAR [Concomitant]
     Dosage: 20 mg, UNK
  5. ACTOPLUS MET [Concomitant]
     Dosage: 15-500 mg
  6. MOVE FREE [Concomitant]
     Dosage: 500-400

REACTIONS (2)
  - Injection site reaction [Recovered/Resolved]
  - Injection site discolouration [Recovered/Resolved]
